FAERS Safety Report 11867131 (Version 2)
Quarter: 2016Q1

REPORT INFORMATION
  Report Type: Other
  Country: IE (occurrence: IE)
  Receive Date: 20151224
  Receipt Date: 20160113
  Transmission Date: 20160526
  Serious: Yes (Other)
  Sender: FDA-Public Use
  Company Number: IE-MEDAC PHARMA, INC.-1045850

PATIENT
  Age: 55 Year
  Sex: Female

DRUGS (3)
  1. METHOTREXATE [Suspect]
     Active Substance: METHOTREXATE
     Indication: RHEUMATOID ARTHRITIS
  2. ALENDRONIC ACID [Suspect]
     Active Substance: ALENDRONIC ACID
  3. HUMIRA [Suspect]
     Active Substance: ADALIMUMAB

REACTIONS (4)
  - Impaired healing [Unknown]
  - Infection [Unknown]
  - Osteonecrosis [Unknown]
  - Osteonecrosis of jaw [None]
